FAERS Safety Report 5784238-7 (Version None)
Quarter: 2008Q2

REPORT INFORMATION
  Report Type: 
  Country: None (occurrence: None)
  Receive Date: 20080619
  Receipt Date: 20080619
  Transmission Date: 20081010
  Serious: Yes (Death)
  Sender: FDA-Public Use
  Company Number: None

PATIENT
  Age: 42 Year
  Sex: Male
  Weight: 121.2 kg

DRUGS (1)
  1. CEPHALEXIN [Suspect]
     Indication: GINGIVAL INFECTION
     Dosage: 500 MG PO 3-6 DAYS AROUND 5/29
     Route: 048

REACTIONS (7)
  - AUTOIMMUNE DISORDER [None]
  - CARDIO-RESPIRATORY ARREST [None]
  - HEPATITIS [None]
  - HEPATORENAL SYNDROME [None]
  - IDIOPATHIC THROMBOCYTOPENIC PURPURA [None]
  - LEUKOPENIA [None]
  - MULTI-ORGAN FAILURE [None]
